FAERS Safety Report 17393692 (Version 36)
Quarter: 2025Q3

REPORT INFORMATION
  Report Type: Report from Study
  Country: US (occurrence: US)
  Receive Date: 20200209
  Receipt Date: 20250714
  Transmission Date: 20251020
  Serious: Yes (Other)
  Sender: TAKEDA
  Company Number: US-SHIRE-US202004823

PATIENT
  Age: 44 Year
  Sex: Female
  Weight: 82 kg

DRUGS (41)
  1. HUMAN IMMUNOGLOBULIN G [Suspect]
     Active Substance: HUMAN IMMUNOGLOBULIN G
     Indication: Immunodeficiency common variable
     Dosage: 40 GRAM, Q3WEEKS
     Dates: start: 20180613
  2. HUMAN IMMUNOGLOBULIN G [Suspect]
     Active Substance: HUMAN IMMUNOGLOBULIN G
     Dosage: 40 GRAM, Q3WEEKS
  3. HUMAN IMMUNOGLOBULIN G [Suspect]
     Active Substance: HUMAN IMMUNOGLOBULIN G
     Dosage: 40 GRAM, Q4WEEKS
     Dates: start: 20181128
  4. HUMAN IMMUNOGLOBULIN G [Suspect]
     Active Substance: HUMAN IMMUNOGLOBULIN G
     Dosage: 40 GRAM, Q4WEEKS
  5. HUMAN IMMUNOGLOBULIN G [Suspect]
     Active Substance: HUMAN IMMUNOGLOBULIN G
     Dosage: 40 GRAM, Q3WEEKS
  6. ACETAMINOPHEN [Concomitant]
     Active Substance: ACETAMINOPHEN
  7. EPINEPHRINE [Concomitant]
     Active Substance: EPINEPHRINE
  8. VITAMIN D [Concomitant]
     Active Substance: VITAMIN D NOS
  9. CRESTOR [Concomitant]
     Active Substance: ROSUVASTATIN CALCIUM
  10. VALACYCLOVIR [Concomitant]
     Active Substance: VALACYCLOVIR HYDROCHLORIDE
  11. ESCITALOPRAM OXALATE [Concomitant]
     Active Substance: ESCITALOPRAM OXALATE
  12. DEXAMETHASONE [Concomitant]
     Active Substance: DEXAMETHASONE
  13. SINGULAIR [Concomitant]
     Active Substance: MONTELUKAST SODIUM
  14. HEPARIN [Concomitant]
     Active Substance: HEPARIN SODIUM
  15. SODIUM CHLORIDE [Concomitant]
     Active Substance: SODIUM CHLORIDE
  16. CYANOCOBALAMIN [Concomitant]
     Active Substance: CYANOCOBALAMIN
  17. TRINTELLIX [Concomitant]
     Active Substance: VORTIOXETINE HYDROBROMIDE
  18. PANTOPRAZOLE SODIUM [Concomitant]
     Active Substance: PANTOPRAZOLE SODIUM
  19. CLARITIN-D NOS [Concomitant]
     Active Substance: LORATADINE\PSEUDOEPHEDRINE SULFATE
  20. PULMICORT TURBUHALER [Concomitant]
     Active Substance: BUDESONIDE
  21. LIDOCAINE [Concomitant]
     Active Substance: LIDOCAINE
  22. LINZESS [Concomitant]
     Active Substance: LINACLOTIDE
  23. PROAIR HFA [Concomitant]
     Active Substance: ALBUTEROL SULFATE
  24. METOPROLOL SUCCINATE [Concomitant]
     Active Substance: METOPROLOL SUCCINATE
  25. CELEBREX [Concomitant]
     Active Substance: CELECOXIB
  26. PROMETHAZINE HYDROCHLORIDE [Concomitant]
     Active Substance: PROMETHAZINE HYDROCHLORIDE
  27. BENADRYL [Concomitant]
     Active Substance: DIPHENHYDRAMINE HYDROCHLORIDE
  28. SODIUM CHLORIDE [Concomitant]
     Active Substance: SODIUM CHLORIDE
  29. EZETIMIBE [Concomitant]
     Active Substance: EZETIMIBE
  30. SIMVASTATIN [Concomitant]
     Active Substance: SIMVASTATIN
  31. CIMZIA [Concomitant]
     Active Substance: CERTOLIZUMAB PEGOL
  32. IRBESARTAN [Concomitant]
     Active Substance: IRBESARTAN
  33. IBUPROFEN [Concomitant]
     Active Substance: IBUPROFEN
  34. ATORVASTATIN [Concomitant]
     Active Substance: ATORVASTATIN
  35. ZITHROMAX [Concomitant]
     Active Substance: AZITHROMYCIN DIHYDRATE
  36. ATIVAN [Concomitant]
     Active Substance: LORAZEPAM
  37. VITAMIN D2 [Concomitant]
     Active Substance: ERGOCALCIFEROL
  38. DIPHENHYDRAMINE HYDROCHLORIDE [Concomitant]
     Active Substance: DIPHENHYDRAMINE HYDROCHLORIDE
  39. REXULTI [Concomitant]
     Active Substance: BREXPIPRAZOLE
  40. DICYCLOMINE HYDROCHLORIDE [Concomitant]
     Active Substance: DICYCLOMINE HYDROCHLORIDE
  41. NAPROXEN [Concomitant]
     Active Substance: NAPROXEN

REACTIONS (23)
  - Pseudomonas infection [Unknown]
  - Weight decreased [Unknown]
  - Dermatitis contact [Unknown]
  - Urinary tract infection [Unknown]
  - Tenderness [Unknown]
  - Animal bite [Unknown]
  - COVID-19 [Unknown]
  - Gastritis [Unknown]
  - Complication associated with device [Unknown]
  - Insurance issue [Unknown]
  - Ear infection [Unknown]
  - Product use issue [Unknown]
  - Sinusitis [Unknown]
  - Upper respiratory tract infection [Unknown]
  - Abdominal discomfort [Unknown]
  - Decreased appetite [Unknown]
  - Pain [Unknown]
  - Chest pain [Unknown]
  - Hypertension [Unknown]
  - Diarrhoea [Unknown]
  - Fatigue [Unknown]
  - Nausea [Unknown]
  - Headache [Unknown]

NARRATIVE: CASE EVENT DATE: 20200724
